FAERS Safety Report 10575187 (Version 1)
Quarter: 2014Q4

REPORT INFORMATION
  Report Type: Spontaneous
  Country: JP (occurrence: JP)
  Receive Date: 20141111
  Receipt Date: 20141111
  Transmission Date: 20150529
  Serious: Yes (Life-Threatening, Other)
  Sender: FDA-Public Use
  Company Number: JP-ROCHE-1488427

PATIENT
  Age: 61 Year
  Sex: Female
  Weight: 47 kg

DRUGS (7)
  1. IRINOTECAN HYDROCHLORIDE TRIHYDRATE [Suspect]
     Active Substance: IRINOTECAN HYDROCHLORIDE
     Indication: MALIGNANT ASCITES
     Route: 041
     Dates: start: 20140919, end: 20140919
  2. VECTIBIX [Concomitant]
     Active Substance: PANITUMUMAB
     Indication: MALIGNANT ASCITES
     Route: 065
     Dates: start: 20140919
  3. AVASTIN [Suspect]
     Active Substance: BEVACIZUMAB
     Indication: COLON CANCER METASTATIC
     Route: 041
     Dates: start: 20140530, end: 20140829
  4. IRINOTECAN HYDROCHLORIDE TRIHYDRATE [Suspect]
     Active Substance: IRINOTECAN HYDROCHLORIDE
     Indication: MALIGNANT ASCITES
     Route: 041
     Dates: start: 20141010, end: 20141010
  5. TS-1 [Concomitant]
     Active Substance: GIMERACIL\OTERACIL\TEGAFUR
     Indication: COLON CANCER METASTATIC
     Route: 048
     Dates: start: 20140509, end: 20140829
  6. VECTIBIX [Concomitant]
     Active Substance: PANITUMUMAB
     Route: 065
     Dates: start: 20141010
  7. ELPLAT [Concomitant]
     Active Substance: OXALIPLATIN
     Indication: COLON CANCER METASTATIC
     Route: 041
     Dates: start: 20140509, end: 20140829

REACTIONS (2)
  - Intestinal perforation [Recovered/Resolved with Sequelae]
  - Malignant ascites [Unknown]

NARRATIVE: CASE EVENT DATE: 20141012
